FAERS Safety Report 4396473-3 (Version None)
Quarter: 2004Q2

REPORT INFORMATION
  Report Type: 
  Country: None (occurrence: None)
  Receive Date: 20040621
  Receipt Date: 20030419
  Transmission Date: 20050107
  Serious: Yes (Other)
  Sender: FDA-Public Use
  Company Number: USA-2003-0006292

PATIENT
  Age: 50 Year
  Sex: Female
  Weight: 59.9 kg

DRUGS (16)
  1. OXYCONTIN [Suspect]
     Indication: PAIN
     Dosage: 10 MG, TID
  2. XANAX [Concomitant]
  3. REGLAN [Concomitant]
  4. BACLOFEN [Concomitant]
  5. NEXIUM [Concomitant]
  6. NEURONTIN [Concomitant]
  7. PROVENTIL [Concomitant]
  8. AZMACORT [Concomitant]
  9. INDERAL [Concomitant]
  10. MIDRIN [Concomitant]
  11. CLARITIN [Concomitant]
  12. VENTOLIN [Concomitant]
  13. SINEX [Concomitant]
  14. PROTONIX [Concomitant]
  15. MULTIVITAMIN [Concomitant]
  16. ELAVIL [Concomitant]

REACTIONS (20)
  - ABDOMINAL PAIN UPPER [None]
  - ABDOMINAL TENDERNESS [None]
  - ANXIETY [None]
  - BACK PAIN [None]
  - CONSTIPATION [None]
  - DEPRESSION [None]
  - DRUG DEPENDENCE [None]
  - DRUG WITHDRAWAL SYNDROME [None]
  - DYSPHAGIA [None]
  - GAMMA-GLUTAMYLTRANSFERASE INCREASED [None]
  - HAEMATOCHEZIA [None]
  - HAEMORRHOIDS [None]
  - HEADACHE [None]
  - HIATUS HERNIA [None]
  - INSOMNIA [None]
  - LIVER FUNCTION TEST ABNORMAL [None]
  - NAUSEA [None]
  - PAIN [None]
  - PAIN IN EXTREMITY [None]
  - POSTOPERATIVE ADHESION [None]
